FAERS Safety Report 23468279 (Version 2)
Quarter: 2024Q1

REPORT INFORMATION
  Report Type: Spontaneous
  Country: US (occurrence: US)
  Receive Date: 20240201
  Receipt Date: 20240212
  Transmission Date: 20240410
  Serious: No
  Sender: FDA-Public Use
  Company Number: US-AMGEN-USASP2024020326

PATIENT
  Age: 76 Year
  Sex: Male

DRUGS (18)
  1. REPATHA [Suspect]
     Active Substance: EVOLOCUMAB
     Indication: Blood disorder
     Dosage: 420 MILLIGRAM, QMO
     Route: 065
  2. REPATHA [Suspect]
     Active Substance: EVOLOCUMAB
     Indication: Coronary artery disease
  3. ACETAMINOPHEN [Concomitant]
     Active Substance: ACETAMINOPHEN
     Dosage: TAKE 65O TABLET BY MOUTH EVERY 4 HOURS AS NEEDED
     Route: 048
  4. BENAZEPRIL [Concomitant]
     Active Substance: BENAZEPRIL HYDROCHLORIDE
     Dosage: TAKE ONE HALF TAB BY MOUTH DAILY
     Route: 048
  5. BUPROPION [Concomitant]
     Active Substance: BUPROPION
     Dosage: TAKE ONE TAB BY MOUTH
     Route: 048
  6. CETIRIZINE HYDROCHLORIDE [Concomitant]
     Active Substance: CETIRIZINE HYDROCHLORIDE
     Dosage: TAKE ONE TAB BY MOUTH DAILY
  7. CHOLECALCIFEROL [Concomitant]
     Active Substance: CHOLECALCIFEROL
     Dosage: TAKE 1 TABLET BY MOUTH DAILY
     Route: 048
  8. DICLOFENAC SODIUM [Concomitant]
     Active Substance: DICLOFENAC\DICLOFENAC SODIUM
     Dosage: TWO G TO AFFECTED AREA (S) FOUR TIMES DAILY
  9. FUROSEMIDE [Concomitant]
     Active Substance: FUROSEMIDE
     Indication: Oedema
     Dosage: 1 TAB BY MOUTH AS NEEDED
     Route: 048
  10. GABAPENTIN [Concomitant]
     Active Substance: GABAPENTIN
     Dosage: ONE CAP BY MOUTH EVERY 8 HOURS
     Route: 048
  11. LEVOTHYROXINE [Concomitant]
     Active Substance: LEVOTHYROXINE\LEVOTHYROXINE SODIUM
     Indication: Hypothyroidism
     Dosage: ONE TAB VIA PEG TUBE DAILY
  12. MECLIZINE [Concomitant]
     Active Substance: MECLIZINE HYDROCHLORIDE
     Indication: Dizziness
     Dosage: TAKE ONE TAB BY MOUTH THREE TIMES DAILY INDICATIONS: DIZZY, SENSATION OF SPINNING OR WHIRLING
  13. OMEPRAZOLE [Concomitant]
     Active Substance: OMEPRAZOLE
     Dosage: ONE CAP BY MOUTH DAILY
     Route: 048
  14. ONDANSETRON [Concomitant]
     Active Substance: ONDANSETRON
     Indication: Nausea
     Dosage: ONE TAB BY MOUTH DAILY EVERY 6 HOURS AS NEEDED FOR NAUSEA
     Route: 048
  15. PREDNISONE [Concomitant]
     Active Substance: PREDNISONE
     Indication: Pneumonia
     Dosage: ONE TAB BY MOUTH DAILY PNEUMONIA
     Route: 048
  16. SCOPOLAMINE [Concomitant]
     Active Substance: SCOPOLAMINE
     Dosage: APPLY ONE PATCH TO CLEAN DRY AREA OF SKIN EVERY 72 HOURS
     Route: 061
  17. TRAMADOL [Concomitant]
     Active Substance: TRAMADOL\TRAMADOL HYDROCHLORIDE
     Indication: Pain
     Dosage: ONE TAB BY MOUTH EVERY 6 HOURS AS NEEDED FOR PAIN
     Route: 048
  18. TRAZODONE [Concomitant]
     Active Substance: TRAZODONE HYDROCHLORIDE
     Dosage: ONE TAB BY MOUTH DAILY AT BEDTIME
     Route: 048

REACTIONS (3)
  - Drug dose omission by device [Unknown]
  - Injection site mass [Unknown]
  - Injection site haemorrhage [Unknown]

NARRATIVE: CASE EVENT DATE: 20240123
